FAERS Safety Report 23738704 (Version 3)
Quarter: 2024Q2

REPORT INFORMATION
  Report Type: Report from Study
  Country: US (occurrence: US)
  Receive Date: 20240412
  Receipt Date: 20240418
  Transmission Date: 20240716
  Serious: Yes (Other)
  Sender: FDA-Public Use
  Company Number: US-ABBVIE-5715461

PATIENT
  Age: 54 Year
  Sex: Male

DRUGS (41)
  1. VENCLEXTA [Suspect]
     Active Substance: VENETOCLAX
     Indication: Chronic lymphocytic leukaemia
     Dosage: FORM STRENGTH: 10 MILLIGRAM?DURATION TEXT: WEEK 1
     Route: 048
     Dates: start: 2021
  2. VENCLEXTA [Suspect]
     Active Substance: VENETOCLAX
     Indication: Chronic lymphocytic leukaemia
     Dosage: FORM STRENGTH: 50 MILLIGRAM?DURATION TEXT: WEEK 2
     Route: 048
  3. VENCLEXTA [Suspect]
     Active Substance: VENETOCLAX
     Indication: Chronic lymphocytic leukaemia
     Dosage: FORM STRENGTH: 100 MILLIGRAM?DURATION TEXT: WEEK 4
     Route: 048
  4. VENCLEXTA [Suspect]
     Active Substance: VENETOCLAX
     Indication: Chronic lymphocytic leukaemia
     Dosage: FORM STRENGTH: 100 MILLIGRAM?DURATION TEXT: WEEK 3
     Route: 048
  5. VENCLEXTA [Suspect]
     Active Substance: VENETOCLAX
     Indication: Chronic lymphocytic leukaemia
     Dosage: FORM STRENGTH: 100 MILLIGRAM
     Route: 048
  6. Acalanib [Concomitant]
     Indication: Product used for unknown indication
     Dosage: FORM STRENGTH: 100 MG
     Route: 048
  7. MG plus-protein [Concomitant]
     Indication: Product used for unknown indication
     Dosage: TIME INTERVAL: 0.01075269 DAYS: 133 MG TABLET TAKE 2 PO TID?FORM STRENGTH: 133 MG
     Route: 048
  8. DEXAMETHASONE [Concomitant]
     Active Substance: DEXAMETHASONE
     Indication: Product used for unknown indication
     Dosage: 5 ML; 0.5 MG/5ML SOLUTION, ORAL TAKE 5 ML PO BID
  9. VALTREX [Concomitant]
     Active Substance: VALACYCLOVIR HYDROCHLORIDE
     Indication: Antiviral prophylaxis
     Dosage: FORM STRENGTH: 1000 MILLIGRAM
     Route: 048
  10. Miracle [Concomitant]
     Indication: Product used for unknown indication
     Dosage: MOUTHWASH TAKE 10 ML SWISH AND SPLT QID PRN;
     Route: 048
  11. VALACYCLOVIR [Concomitant]
     Active Substance: VALACYCLOVIR HYDROCHLORIDE
     Indication: Product used for unknown indication
     Dosage: FORM STRENGTH: 1000 MG
     Route: 048
  12. CYMBALTA [Concomitant]
     Active Substance: DULOXETINE HYDROCHLORIDE
     Indication: Pain prophylaxis
     Dosage: TAKE 2 CAPSULE AT 9 AM?FORM STRENGTH: 60 MILLIGRAM
     Route: 048
  13. CYMBALTA [Concomitant]
     Active Substance: DULOXETINE HYDROCHLORIDE
     Indication: Pain prophylaxis
     Dosage: FORM STRENGTH: 60 MG ?FREQUENCY TEXT: TAKE ONE CAPSULE BY MOUTH EVERY DAY
     Route: 048
  14. TRIAMCINOLONE ACETONIDE [Concomitant]
     Active Substance: TRIAMCINOLONE ACETONIDE
     Indication: Product used for unknown indication
     Dosage: FORM STRENGTH: 0.1 PERCENT?0.1% CREAM GRAM
     Route: 061
  15. LOSARTAN POTASSIUM [Concomitant]
     Active Substance: LOSARTAN POTASSIUM
     Indication: Product used for unknown indication
     Dosage: 50 MG TABLET, TAKE 2 TABLETS BY MOUTH?FORM STRENGTH: 50 MG
     Route: 048
  16. LYRICA [Concomitant]
     Active Substance: PREGABALIN
     Indication: Seizure
     Dosage: 75 MG CAPSULE TAKE 1 PO BID?FORM STRENGTH: 75 MG
     Route: 048
  17. ROBAXIN [Concomitant]
     Active Substance: METHOCARBAMOL
     Indication: Muscle spasms
     Dosage: 500 MG TAB
  18. NIFEDIPINE [Concomitant]
     Active Substance: NIFEDIPINE
     Indication: Product used for unknown indication
     Dosage: 1 TABLET?FORM STRENGTH: 30 MG?ER 30MG TABLET ER 24HR
     Route: 048
  19. SILDENAFIL CITRATE [Concomitant]
     Active Substance: SILDENAFIL CITRATE
     Indication: Product used for unknown indication
     Dosage: PRN ONE HR BEFORE SEXUAL ACTIVITY
     Route: 048
  20. UNITHROID [Concomitant]
     Active Substance: LEVOTHYROXINE SODIUM
     Indication: Product used for unknown indication
     Dosage: TAKE 1 TABLETS AT 9 AM?FORM STRENGTH: 50 MICROGRAM
  21. PREDNISONE [Concomitant]
     Active Substance: PREDNISONE
     Indication: Product used for unknown indication
     Dosage: TAKE 4 TABLETS DAILY?FORM STRENGTH: 10 MG
     Route: 048
  22. PROGRAF [Concomitant]
     Active Substance: TACROLIMUS
     Indication: Immune disorder prophylaxis
     Dosage: FORM STRENGTH: 0.5 MILLIGRAM?FREQUENCY TEXT: 1 CAPSULE 9 AM AND 1 CAPSULE 9 PM
  23. PROGRAF [Concomitant]
     Active Substance: TACROLIMUS
     Indication: Immune disorder prophylaxis
     Dosage: FORM STRENGTH: 1 MILLIGRAM?FREQUENCY TEXT: 1 CAPSULE 9 AM AND 1 CAPSULE 9 PM
  24. PRISTIQ EXTENDED-RELEASE [Concomitant]
     Active Substance: DESVENLAFAXINE SUCCINATE
     Indication: Product used for unknown indication
     Dosage: 50MG TABLET EXTENDED RELEASE 24HR, SUSTAINED RELEASE?FORM STRENGTH: 50 MG
     Route: 048
  25. TACROLIMUS [Concomitant]
     Active Substance: TACROLIMUS
     Indication: Product used for unknown indication
     Dosage: TAKE 2 CAPSULE TWICE DAY?FORM STRENGTH: 1 MG
     Route: 048
  26. ATIVAN [Concomitant]
     Active Substance: LORAZEPAM
     Indication: Nausea
     Dosage: 1 MG;1 MG TABLET TAKE 1 PO 061-1 PRN NAUSEA
     Route: 048
  27. FLUCONAZOLE [Concomitant]
     Active Substance: FLUCONAZOLE
     Indication: Product used for unknown indication
     Dosage: 200 MG TABLET, TAKE 2 TABLETS BY MOUTH?FORM STRENGTH: 200 MG
     Route: 048
  28. ZOFRAN [Concomitant]
     Active Substance: ONDANSETRON HYDROCHLORIDE
     Indication: Nausea
     Dosage: FORM STRENGTH: 8 MG
     Route: 048
  29. COZAAR [Concomitant]
     Active Substance: LOSARTAN POTASSIUM
     Indication: Blood pressure management
     Dosage: FORM STRENGTH: 25 MILLIGRAM,?FREQUENCY TEXT: TAKE 1 TABLET 9 AM
     Route: 048
  30. COZAAR [Concomitant]
     Active Substance: LOSARTAN POTASSIUM
     Indication: Blood pressure management
     Dosage: FORM STRENGTH: 50 MILLIGRAM?FREQUENCY TEXT: TAKE 1 TABLET 9 AM?FREQUENCY TEXT: 50 MG TABLET, TAKE...
     Route: 048
  31. NICOTINE [Concomitant]
     Active Substance: NICOTINE
     Indication: Product used for unknown indication
     Dosage: 1 PATCH AS DIRECTED? 21MG/24HR PATCH
     Route: 062
  32. LOMOTIL [Concomitant]
     Active Substance: ATROPINE SULFATE\DIPHENOXYLATE HYDROCHLORIDE
     Indication: Diarrhoea
     Dosage: 0.025MG/2.5 MG TABLETS
  33. ALBUTEROL SULFATE [Concomitant]
     Active Substance: ALBUTEROL SULFATE
     Indication: Dyspnoea
     Dosage: 2 PUFFS BY MOUTH EVERY 6 HOURS AS NEEDED? HFA 90 MCG HFA AEROSOL WITH ADAPTER (GRAM), INHALE
     Route: 055
  34. NORVASC [Concomitant]
     Active Substance: AMLODIPINE BESYLATE
     Indication: Product used for unknown indication
     Dosage: FORM STRENGTH: 5 MG
     Route: 048
  35. ALPRAZOLAM [Concomitant]
     Active Substance: ALPRAZOLAM
     Indication: Product used for unknown indication
     Dosage: TIME INTERVAL: 0.33333333 DAYS: 1 MG PO TID
     Route: 048
  36. POTASSIUM CHLORIDE [Concomitant]
     Active Substance: POTASSIUM CHLORIDE
     Indication: Product used for unknown indication
     Dosage: 20MEQ EXT RELEASE PARTICLES/CRYSTAL
     Route: 048
  37. WELLBUTRIN [Concomitant]
     Active Substance: BUPROPION HYDROCHLORIDE
     Indication: Affective disorder
     Dosage: TAKE 2 TABLETS 9 AM?FORM STRENGTH: 150 MILLIGRAM
  38. SILDENAFIL [Concomitant]
     Active Substance: SILDENAFIL
     Indication: Product used for unknown indication
     Dosage: PRN ONE HR BEFORE SEXUAL ACTIVITY?FORM STRENGTH: 50 MILLIGRAM
     Route: 048
  39. XANAX [Concomitant]
     Active Substance: ALPRAZOLAM
     Indication: Anxiety
     Dosage: TAKE 3 TABLETS PER DAY?FORM STRENGTH: 1 MILLIGRAM
  40. ENTOCORT EC [Concomitant]
     Active Substance: BUDESONIDE
     Indication: Crohn^s disease
     Dosage: TAKE 1 TABLET AT 9 AM AND 1 AT 9 PM, MUST BE SWALLOWED WHOLE.DO NOT BREAK , CRUSH  OR CHEW?FORM S...
  41. TRIAMCINOLONE ACETONIDE [Concomitant]
     Active Substance: TRIAMCINOLONE ACETONIDE
     Indication: Product used for unknown indication
     Dosage: FORM STRENGTH: 0.1 PERCENT
     Route: 061

REACTIONS (5)
  - Recurrent cancer [Unknown]
  - Drug ineffective [Unknown]
  - Malaise [Unknown]
  - Nausea [Not Recovered/Not Resolved]
  - Fatigue [Not Recovered/Not Resolved]

NARRATIVE: CASE EVENT DATE: 20240101
